FAERS Safety Report 8970114 (Version 1)
Quarter: 2012Q4

REPORT INFORMATION
  Report Type: 
  Country: US (occurrence: US)
  Receive Date: 20121218
  Receipt Date: 20121218
  Transmission Date: 20130627
  Serious: No
  Sender: FDA-Public Use
  Company Number: US-ABBOTT-12P-163-0902262-00

PATIENT
  Sex: Female
  Weight: 49.03 kg

DRUGS (6)
  1. PROMETRIUM [Suspect]
     Indication: MENOPAUSE
     Dosage: Take for 12 days each month.
     Dates: start: 2006
  2. PROMETRIUM [Suspect]
     Dosage: Take for 12 days each month.
     Dates: start: 201107
  3. PROMETRIUM [Suspect]
     Dosage: Take for 12 days each month.
     Dates: end: 2011
  4. VIVELLE DOT [Concomitant]
     Indication: OESTROGEN REPLACEMENT THERAPY
  5. ALBUTEROL [Concomitant]
     Indication: ASTHMA
     Route: 055
  6. QVAR [Concomitant]
     Indication: ASTHMA
     Route: 055

REACTIONS (4)
  - Metrorrhagia [Recovered/Resolved]
  - Blood glucose increased [Recovered/Resolved]
  - Off label use [Unknown]
  - Menopause [Unknown]
